FAERS Safety Report 7407600-5 (Version None)
Quarter: 2011Q2

REPORT INFORMATION
  Report Type: 
  Country: None (occurrence: None)
  Receive Date: 20110406
  Receipt Date: 20110406
  Transmission Date: 20111010
  Serious: No
  Sender: FDA-Public Use
  Company Number: None

PATIENT
  Age: 42 Year
  Sex: Male
  Weight: 81 kg

DRUGS (1)
  1. METRONIDAZOLE [Suspect]
     Dates: start: 20101201, end: 20101201

REACTIONS (3)
  - RASH [None]
  - URTICARIA [None]
  - PRURITUS [None]
